FAERS Safety Report 7000507-7 (Version None)
Quarter: 2010Q3

REPORT INFORMATION
  Report Type: 
  Country: None (occurrence: None)
  Receive Date: 20100920
  Receipt Date: 20100415
  Transmission Date: 20110219
  Serious: Yes (Disabling)
  Sender: FDA-Public Use
  Company Number: US-ASTRAZENECA-2007UW08352

PATIENT
  Sex: Male

DRUGS (8)
  1. SEROQUEL [Suspect]
     Route: 048
     Dates: start: 20090116
  2. MIRTAZAPINE [Concomitant]
     Route: 048
     Dates: start: 20090116
  3. LORAZEPAM [Concomitant]
     Route: 048
     Dates: start: 20090116
  4. RISPERIDONE [Concomitant]
     Route: 048
     Dates: start: 20090116
  5. HYDROXYZINE PAM [Concomitant]
     Route: 048
     Dates: start: 20090116
  6. TRAMADOL HCL [Concomitant]
     Route: 048
     Dates: start: 20090116
  7. FOSINOPRIL SODIUM [Concomitant]
     Route: 048
     Dates: start: 20090116
  8. DIPHENHYDRAMINE HCL [Concomitant]
     Route: 048
     Dates: start: 20090116

REACTIONS (1)
  - DIABETES MELLITUS [None]
